FAERS Safety Report 10302214 (Version 1)
Quarter: 2014Q3

REPORT INFORMATION
  Report Type: Spontaneous
  Country: US (occurrence: None)
  Receive Date: 20140710
  Receipt Date: 20140710
  Transmission Date: 20150326
  Serious: No
  Sender: FDA-Public Use
  Company Number: None

PATIENT
  Age: 51 Year
  Sex: Male
  Weight: 120.4 kg

DRUGS (1)
  1. CISPLATIN. [Suspect]
     Active Substance: CISPLATIN

REACTIONS (5)
  - Nausea [None]
  - Lymphocyte count decreased [None]
  - Vomiting [None]
  - Gastroenteritis viral [None]
  - Diarrhoea [None]

NARRATIVE: CASE EVENT DATE: 20140623
